FAERS Safety Report 4457952-3 (Version None)
Quarter: 2004Q3

REPORT INFORMATION
  Report Type: 
  Country: None (occurrence: None)
  Receive Date: 20040924
  Receipt Date: 20040913
  Transmission Date: 20050211
  Serious: Yes (Hospitalization)
  Sender: FDA-Public Use
  Company Number: FR-BRISTOL-MYERS SQUIBB COMPANY-12700472

PATIENT
  Age: 71 Year
  Sex: Female

DRUGS (5)
  1. AMIKACIN [Suspect]
     Indication: PNEUMONIA
     Dosage: 10 MG/KG ONCE
     Route: 051
  2. PIPERACILLIN [Suspect]
     Indication: PNEUMONIA
  3. TAZOBACTAM SODIUM [Suspect]
     Indication: PNEUMONIA
  4. VANCOMYCIN [Suspect]
     Indication: PNEUMONIA
  5. LEVOFLOXACIN [Concomitant]
     Indication: PNEUMONIA

REACTIONS (1)
  - RENAL TUBULAR NECROSIS [None]
